FAERS Safety Report 14229448 (Version 2)
Quarter: 2017Q4

REPORT INFORMATION
  Report Type: Spontaneous
  Country: US (occurrence: US)
  Receive Date: 20171128
  Receipt Date: 20171212
  Transmission Date: 20180321
  Serious: Yes (Death, Hospitalization)
  Sender: FDA-Public Use
  Company Number: US-UNITED THERAPEUTICS-UNT-2017-016687

PATIENT
  Sex: Male

DRUGS (1)
  1. REMODULIN [Suspect]
     Active Substance: TREPROSTINIL
     Indication: PRODUCT USED FOR UNKNOWN INDICATION
     Dosage: 0.137 ?G/KG, CONTINUING
     Route: 041
     Dates: start: 20161220, end: 20171206

REACTIONS (2)
  - Clostridium difficile infection [Unknown]
  - Death [Fatal]

NARRATIVE: CASE EVENT DATE: 20171008
